FAERS Safety Report 6442345-X (Version None)
Quarter: 2009Q4

REPORT INFORMATION
  Report Type: 
  Country: None (occurrence: None)
  Receive Date: 20091112
  Receipt Date: 20091102
  Transmission Date: 20100525
  Serious: Yes (Other)
  Sender: FDA-Public Use
  Company Number: ADR46322009

PATIENT
  Age: 49 Year
  Sex: Female

DRUGS (1)
  1. SIMVASTATIN [Suspect]
     Dosage: 10 MG THEN 20 MG ORAL
     Route: 048
     Dates: start: 20040120, end: 20060525

REACTIONS (4)
  - DEPRESSED MOOD [None]
  - MALAISE [None]
  - NIGHTMARE [None]
  - SLEEP DISORDER [None]
